FAERS Safety Report 8816411 (Version 1)
Quarter: 2012Q4

REPORT INFORMATION
  Report Type: Spontaneous
  Country: JP (occurrence: None)
  Receive Date: 20120927
  Receipt Date: 20120927
  Transmission Date: 20130627
  Serious: Yes (Death)
  Sender: FDA-Public Use
  Company Number: ADR-2012-01767

PATIENT
  Age: 63 Year
  Sex: Male

DRUGS (1)
  1. GABALON [Suspect]

REACTIONS (1)
  - Death [None]
